FAERS Safety Report 8439773-X (Version None)
Quarter: 2012Q2

REPORT INFORMATION
  Report Type: 
  Country: None (occurrence: None)
  Receive Date: 20120615
  Receipt Date: 20120605
  Transmission Date: 20120825
  Serious: Yes (Hospitalization)
  Sender: FDA-Public Use
  Company Number: US-JNJFOC-20120306034

PATIENT
  Sex: Male
  Weight: 32.7 kg

DRUGS (20)
  1. ANTIBIOTICS [Concomitant]
     Indication: INFLAMMATORY BOWEL DISEASE
  2. FISH OIL [Concomitant]
  3. REMICADE [Suspect]
     Indication: INFLAMMATORY BOWEL DISEASE
     Route: 042
     Dates: start: 20100207, end: 20100319
  4. DESONIDE [Concomitant]
  5. RIFAXIMIN [Concomitant]
  6. PERIACTIN [Concomitant]
  7. AMOXICILLIN [Concomitant]
  8. ELAVIL [Concomitant]
  9. ZOFRAN [Concomitant]
  10. METHOTREXATE [Concomitant]
     Indication: INFLAMMATORY BOWEL DISEASE
  11. PROBIOTICS [Concomitant]
     Indication: INFLAMMATORY BOWEL DISEASE
  12. PRILOSEC [Concomitant]
  13. LIDOCAINE/PRILOCAINE [Concomitant]
  14. ACETAMINOPHEN W/ CODEINE [Concomitant]
  15. NEUPOGEN [Concomitant]
  16. CARAFATE [Concomitant]
  17. MAXALT [Concomitant]
  18. BUDESONIDE [Concomitant]
     Indication: INFLAMMATORY BOWEL DISEASE
  19. MESALAMINE [Concomitant]
     Indication: INFLAMMATORY BOWEL DISEASE
     Route: 048
  20. ZINC SULFATE [Concomitant]

REACTIONS (2)
  - ILEAL STENOSIS [None]
  - ILEUS [None]
